FAERS Safety Report 13786418 (Version 1)
Quarter: 2017Q3

REPORT INFORMATION
  Report Type: Report from Study
  Country: US (occurrence: None)
  Receive Date: 20170712
  Receipt Date: 20170712
  Transmission Date: 20171127
  Serious: Yes (Hospitalization)
  Sender: FDA-Public Use
  Company Number: 2017UCU075000141

PATIENT
  Age: 71 Year
  Sex: Male
  Weight: 91.9 kg

DRUGS (8)
  1. CIMZIA [Suspect]
     Active Substance: CERTOLIZUMAB PEGOL
     Indication: CROHN^S DISEASE
     Dates: start: 20140305, end: 20150715
  2. AZATHIOPRINE. [Concomitant]
     Active Substance: AZATHIOPRINE
  3. LOPERAMIDE [Concomitant]
     Active Substance: LOPERAMIDE
  4. DIPHENOXYLATE [Concomitant]
     Active Substance: DIPHENOXYLATE
  5. METHOTREXATE. [Suspect]
     Active Substance: METHOTREXATE
     Dates: start: 20121011, end: 20121120
  6. INFLIXIMAB [Concomitant]
     Active Substance: INFLIXIMAB
  7. 6-MP [Concomitant]
     Active Substance: MERCAPTOPURINE
  8. VEDOLIZUMAB [Concomitant]
     Active Substance: VEDOLIZUMAB

REACTIONS (1)
  - Pneumonia [None]

NARRATIVE: CASE EVENT DATE: 20161207
